FAERS Safety Report 5626747-7 (Version None)
Quarter: 2008Q1

REPORT INFORMATION
  Report Type: 
  Country: None (occurrence: None)
  Receive Date: 20080214
  Receipt Date: 20080205
  Transmission Date: 20080703
  Serious: Yes (Life-Threatening, Hospitalization, Other)
  Sender: FDA-Public Use
  Company Number: PFIZER INC-2008003400

PATIENT
  Sex: Male
  Weight: 78 kg

DRUGS (8)
  1. DOXORUBICIN HCL [Suspect]
     Indication: HODGKIN'S DISEASE
     Dosage: DAILY DOSE:35MG/M2
     Dates: start: 20071205, end: 20071205
  2. ETOPOSIDE [Suspect]
     Indication: HODGKIN'S DISEASE
     Dosage: DAILY DOSE:200MG/M2
     Dates: start: 20071205, end: 20071207
  3. ENDOXAN [Suspect]
     Indication: HODGKIN'S DISEASE
     Dosage: DAILY DOSE:1250MG/M2
     Dates: start: 20071205, end: 20071205
  4. VINCRISTINE [Suspect]
     Indication: HODGKIN'S DISEASE
     Dosage: DAILY DOSE:2MG/M2
     Dates: start: 20071212, end: 20071212
  5. BLEOMYCIN [Suspect]
     Indication: HODGKIN'S DISEASE
     Dosage: DAILY DOSE:10MG/M2
     Dates: start: 20071212, end: 20071212
  6. PROCARBAZINE HYDROCHLORIDE [Suspect]
     Indication: HODGKIN'S DISEASE
     Dosage: DAILY DOSE:100MG/M2
     Dates: start: 20071205, end: 20071211
  7. NEUPOGEN [Concomitant]
     Dates: start: 20071212, end: 20071222
  8. DECORTIN [Concomitant]
     Dates: start: 20071205, end: 20071219

REACTIONS (14)
  - BACTERIAL SEPSIS [None]
  - CHILLS [None]
  - CONVULSION [None]
  - DIARRHOEA [None]
  - FALL [None]
  - MYOCLONUS [None]
  - NEUTROPENIA [None]
  - PANCYTOPENIA [None]
  - PYREXIA [None]
  - RENAL FAILURE ACUTE [None]
  - RESPIRATORY FAILURE [None]
  - SEPTIC SHOCK [None]
  - SUBARACHNOID HAEMORRHAGE [None]
  - VOMITING [None]
